FAERS Safety Report 18658789 (Version 3)
Quarter: 2021Q1

REPORT INFORMATION
  Report Type: Report from Study
  Country: US (occurrence: US)
  Receive Date: 20201223
  Receipt Date: 20210127
  Transmission Date: 20210419
  Serious: Yes (Hospitalization)
  Sender: FDA-Public Use
  Company Number: US-PFIZER INC-2020501282

PATIENT
  Age: 77 Year
  Sex: Male

DRUGS (2)
  1. TALAZOPARIB. [Suspect]
     Active Substance: TALAZOPARIB
     Indication: RENAL CANCER
     Dosage: 1 MG, QD
     Route: 048
     Dates: start: 20201216
  2. AVELUMAB [Suspect]
     Active Substance: AVELUMAB
     Indication: RENAL CANCER
     Dosage: 800 MG, Q2W
     Route: 042
     Dates: start: 20201216

REACTIONS (1)
  - Infusion related reaction [Recovered/Resolved]

NARRATIVE: CASE EVENT DATE: 20201216
